FAERS Safety Report 23780114 (Version 1)
Quarter: 2024Q2

REPORT INFORMATION
  Report Type: Spontaneous
  Country: US (occurrence: None)
  Receive Date: 20240424
  Receipt Date: 20240424
  Transmission Date: 20240716
  Serious: No
  Sender: FDA-Public Use
  Company Number: 2024A097463

PATIENT
  Age: 835 Month
  Sex: Male

DRUGS (1)
  1. BREZTRI [Suspect]
     Active Substance: BUDESONIDE\FORMOTEROL\GLYCOPYRROLATE
     Indication: Chronic obstructive pulmonary disease
     Route: 055
     Dates: start: 2023

REACTIONS (6)
  - Dyspnoea [Unknown]
  - Pneumonia [Unknown]
  - Wrong technique in device usage process [Unknown]
  - Device delivery system issue [Unknown]
  - Product after taste [Unknown]
  - Incorrect dose administered by device [Unknown]

NARRATIVE: CASE EVENT DATE: 20240401
